FAERS Safety Report 11790689 (Version 3)
Quarter: 2016Q1

REPORT INFORMATION
  Report Type: Spontaneous
  Country: US (occurrence: US)
  Receive Date: 20151201
  Receipt Date: 20160218
  Transmission Date: 20160525
  Serious: Yes (Hospitalization)
  Sender: FDA-Public Use
  Company Number: US-PFIZER INC-2014205204

PATIENT
  Age: 66 Year
  Sex: Female
  Weight: 73 kg

DRUGS (18)
  1. SIMVASTATIN. [Concomitant]
     Active Substance: SIMVASTATIN
     Indication: HYPERLIPIDAEMIA
     Dosage: 20 MG, DAILY
     Dates: start: 20150727
  2. LYRICA [Suspect]
     Active Substance: PREGABALIN
     Dosage: 150 MG, 3X/DAY (75MG 2 CAP PO TID)
     Route: 048
  3. KENALOG [Concomitant]
     Active Substance: TRIAMCINOLONE ACETONIDE
     Dosage: 0.1 %, TWICE DAILY AS NEEDED
  4. ALDACTONE [Concomitant]
     Active Substance: SPIRONOLACTONE
     Dosage: 25 MG, 1X/DAY
     Route: 048
  5. NORCO [Concomitant]
     Active Substance: ACETAMINOPHEN\HYDROCODONE BITARTRATE
     Indication: PAIN
     Dosage: 1 DF, EVERY 6 HOURS AS NEEDED
     Route: 048
  6. FAMOTIDINE. [Concomitant]
     Active Substance: FAMOTIDINE
     Indication: GASTROOESOPHAGEAL REFLUX DISEASE
     Dosage: 20 MG, DAILY
     Dates: start: 20150513
  7. LYRICA [Suspect]
     Active Substance: PREGABALIN
     Indication: PAIN
     Dosage: 75 MG, 2 IN THE MORNING 2 IN THE AFTERNOON AND 2 OR 3 AT BEDTIME
     Route: 048
  8. DURAGESIC [Concomitant]
     Active Substance: FENTANYL
     Dosage: 50 UG, 1 PATCH ONTO THE SKIN EVERY 72 HOURS
  9. DURAGESIC [Concomitant]
     Active Substance: FENTANYL
     Dosage: UNK
  10. FOLIC ACID. [Concomitant]
     Active Substance: FOLIC ACID
     Indication: RENAL DISORDER
     Dosage: UNK, DAILY
  11. TEMOVATE [Concomitant]
     Active Substance: CLOBETASOL PROPIONATE
     Dosage: 0.05 %, AS NEEDED
  12. METHOTREXATE [Concomitant]
     Active Substance: METHOTREXATE
     Indication: ECZEMA
     Dosage: 15 MG, WEEKLY
     Dates: start: 20150713
  13. FOLIC ACID. [Concomitant]
     Active Substance: FOLIC ACID
     Indication: LIVER DISORDER
  14. ELAVIL [Concomitant]
     Active Substance: AMITRIPTYLINE HYDROCHLORIDE
     Dosage: 25 MG, 1X/DAY(EVERY NIGHT AT BEDTIME)
     Route: 048
  15. LYRICA [Suspect]
     Active Substance: PREGABALIN
     Indication: FIBROMYALGIA
     Dosage: 75 MG, 3X/DAY (2 AM (6 AM), 2 AFTERNOON (NOON), 2 (6 PM), 3 (BEDTIME))
     Route: 048
  16. PEPCID [Concomitant]
     Active Substance: FAMOTIDINE
     Indication: GASTRIC DISORDER
     Dosage: 20 MG, 1X/DAY(EVERY NIGHT AT BEDTIME)
     Route: 048
  17. HYDROCODONE [Concomitant]
     Active Substance: HYDROCODONE
     Indication: FIBROMYALGIA
     Dosage: UNK
  18. TOBACCO [Concomitant]
     Active Substance: TOBACCO LEAF
     Dosage: UNK

REACTIONS (6)
  - Intentional product misuse [Recovered/Resolved]
  - Feeling hot [Unknown]
  - Blister [Recovered/Resolved]
  - Erythema [Unknown]
  - Skin exfoliation [Unknown]
  - Rash [Recovered/Resolved]
